FAERS Safety Report 13678654 (Version 1)
Quarter: 2017Q2

REPORT INFORMATION
  Report Type: Spontaneous
  Country: US (occurrence: US)
  Receive Date: 20170622
  Receipt Date: 20170622
  Transmission Date: 20170830
  Serious: No
  Sender: FDA-Public Use
  Company Number: US-SA-2016SA173646

PATIENT
  Age: 7 Year
  Sex: Female
  Weight: 21.77 kg

DRUGS (12)
  1. HEPARIN [Concomitant]
     Active Substance: HEPARIN SODIUM
     Dates: start: 20160908
  2. EPIPEN [Concomitant]
     Active Substance: EPINEPHRINE
     Dates: start: 20160908
  3. LANSOPRAZOLE. [Concomitant]
     Active Substance: LANSOPRAZOLE
     Dates: start: 20150831
  4. QVAR [Concomitant]
     Active Substance: BECLOMETHASONE DIPROPIONATE
     Dosage: INHALER
     Dates: start: 20131122
  5. DIPHENHYDRAMINE. [Concomitant]
     Active Substance: DIPHENHYDRAMINE
     Route: 048
     Dates: start: 20160908
  6. SPIRONOLACTONE. [Concomitant]
     Active Substance: SPIRONOLACTONE
     Dates: start: 20160630
  7. SINGULAIR [Concomitant]
     Active Substance: MONTELUKAST SODIUM
     Dosage: CHEW
     Dates: start: 20131107
  8. CEREZYME [Suspect]
     Active Substance: IMIGLUCERASE
     Dosage: DOSE:82.68 UNIT(S)/KILOGRAM BODYWEIGHT
     Route: 041
     Dates: start: 20120702
  9. L-M-X [Concomitant]
     Dates: start: 20160908
  10. PEDIACARE FEVER [Concomitant]
     Dates: start: 20160309
  11. ALBUTEROL SULFATE. [Concomitant]
     Active Substance: ALBUTEROL SULFATE
     Dates: start: 20150610
  12. NORMAL SALINE [Concomitant]
     Active Substance: SODIUM CHLORIDE
     Dates: start: 20160908

REACTIONS (1)
  - Infusion site pain [Recovered/Resolved]
